FAERS Safety Report 11376004 (Version 1)
Quarter: 2015Q3

REPORT INFORMATION
  Report Type: Spontaneous
  Country: DE (occurrence: DE)
  Receive Date: 20150813
  Receipt Date: 20150813
  Transmission Date: 20151125
  Serious: Yes (Life-Threatening, Disabling, Other)
  Sender: FDA-Public Use
  Company Number: DE-ASTRAZENECA-2015SE72259

PATIENT
  Age: 23433 Day
  Sex: Male
  Weight: 95 kg

DRUGS (6)
  1. ASPIRIN. [Concomitant]
     Active Substance: ASPIRIN
     Route: 042
     Dates: start: 20150717
  2. HEPARIN [Concomitant]
     Active Substance: HEPARIN SODIUM
     Route: 013
     Dates: start: 20150718, end: 20150718
  3. BRILIQUE [Suspect]
     Active Substance: TICAGRELOR
     Indication: ACUTE CORONARY SYNDROME
     Route: 048
  4. HEPARIN [Concomitant]
     Active Substance: HEPARIN SODIUM
     Route: 042
     Dates: start: 20150717, end: 20150717
  5. BRILIQUE [Suspect]
     Active Substance: TICAGRELOR
     Indication: ACUTE CORONARY SYNDROME
     Route: 048
     Dates: start: 20150717, end: 20150718
  6. CLEXANE [Concomitant]
     Active Substance: ENOXAPARIN SODIUM
     Route: 013
     Dates: start: 20150717

REACTIONS (8)
  - Aphasia [Unknown]
  - Facial paresis [Unknown]
  - Sensory loss [Unknown]
  - Gait disturbance [Unknown]
  - Muscular weakness [Unknown]
  - Cerebral haemorrhage [Not Recovered/Not Resolved]
  - Dysarthria [Unknown]
  - Hemiplegia [Unknown]

NARRATIVE: CASE EVENT DATE: 20150718
